FAERS Safety Report 5373765-2 (Version None)
Quarter: 2007Q2

REPORT INFORMATION
  Report Type: 
  Country: None (occurrence: None)
  Receive Date: 20070628
  Receipt Date: 20070619
  Transmission Date: 20071010
  Serious: Yes (Hospitalization)
  Sender: FDA-Public Use
  Company Number: HQWYE719421JUN07

PATIENT
  Age: 65 Year
  Sex: Male

DRUGS (3)
  1. PIPERACILLIN AND TAZOBACTAM [Suspect]
     Indication: ENTEROCOCCAL SEPSIS
     Dosage: UNKNOWN DOSE AND FREQUENCY
     Route: 042
  2. ATORVASTATIN [Concomitant]
     Route: 065
  3. ACETYLSALICYLIC ACID SRT [Concomitant]
     Route: 065

REACTIONS (4)
  - BRAIN ABSCESS [None]
  - DRUG INEFFECTIVE [None]
  - ENDOCARDITIS ENTEROCOCCAL [None]
  - ENTEROCOCCAL INFECTION [None]
